FAERS Safety Report 20718035 (Version 1)
Quarter: 2022Q2

REPORT INFORMATION
  Report Type: Spontaneous
  Country: US (occurrence: US)
  Receive Date: 20220418
  Receipt Date: 20220418
  Transmission Date: 20220720
  Serious: No
  Sender: FDA-Public Use
  Company Number: US-NOVARTISTESTPH-NVSC2022US086412

PATIENT
  Sex: Female

DRUGS (2)
  1. ENTRESTO [Suspect]
     Active Substance: SACUBITRIL\VALSARTAN
     Indication: Product used for unknown indication
     Dosage: 0.5 DOSAGE FORM, UNKNOWN (CUT ALL MY MEDS INTO 1\2^S AND QUARTERS)
     Route: 065
  2. ENTRESTO [Suspect]
     Active Substance: SACUBITRIL\VALSARTAN
     Dosage: 0.25 DOSAGE FORM, UNKNOWN (CUT ALL MY MEDS INTO 1\2^S AND QUARTERS)
     Route: 065

REACTIONS (1)
  - Wrong technique in product usage process [Unknown]
